FAERS Safety Report 15265038 (Version 1)
Quarter: 2018Q3

REPORT INFORMATION
  Report Type: Spontaneous
  Country: FR (occurrence: FR)
  Receive Date: 20180723
  Receipt Date: 20180723
  Transmission Date: 20181010
  Serious: No
  Sender: FDA-Public Use
  Company Number: None

PATIENT
  Age: 5 Year
  Sex: Female
  Weight: 30.6 kg

DRUGS (2)
  1. KEPPRA [Suspect]
     Active Substance: LEVETIRACETAM
     Indication: EPILEPSY
     Dosage: ?          QUANTITY:2 ML;?
     Route: 048
     Dates: start: 20180712, end: 20180723
  2. DAILY CHILDRENS VITAMIN [Concomitant]

REACTIONS (2)
  - Irritability [None]
  - Aggression [None]

NARRATIVE: CASE EVENT DATE: 20180721
